FAERS Safety Report 6418682-1 (Version None)
Quarter: 2009Q4

REPORT INFORMATION
  Report Type: 
  Country: None (occurrence: None)
  Receive Date: 20091028
  Receipt Date: 20091014
  Transmission Date: 20100525
  Serious: Yes (Disabling)
  Sender: FDA-Public Use
  Company Number: CH-GENENTECH-292767

PATIENT
  Sex: Female

DRUGS (1)
  1. BEVACIZUMAB [Suspect]
     Indication: BREAST CANCER METASTATIC
     Dosage: 375 MG, Q21D
     Route: 042
     Dates: start: 20080226

REACTIONS (1)
  - OESOPHAGEAL STENOSIS [None]
